FAERS Safety Report 7190030-1 (Version None)
Quarter: 2010Q4

REPORT INFORMATION
  Report Type: 
  Country: None (occurrence: None)
  Receive Date: 20101223
  Receipt Date: 20101214
  Transmission Date: 20110411
  Serious: Yes (Other)
  Sender: FDA-Public Use
  Company Number: US-JNJFOC-20100807833

PATIENT
  Sex: Female

DRUGS (12)
  1. LEVAQUIN [Suspect]
     Indication: URINARY TRACT INFECTION
     Route: 048
  2. LEVAQUIN [Suspect]
     Route: 048
  3. LEVAQUIN [Suspect]
     Indication: SINUSITIS
     Route: 048
  4. LEVAQUIN [Suspect]
     Route: 048
  5. LEVAQUIN [Suspect]
     Indication: CYSTITIS
     Route: 048
  6. LEVAQUIN [Suspect]
     Route: 048
  7. PREDNISONE [Suspect]
     Indication: MULTIPLE SCLEROSIS
     Route: 048
  8. PREDNISONE [Suspect]
     Route: 048
  9. PREDNISONE [Suspect]
     Route: 048
  10. CIPRO [Suspect]
     Indication: URINARY TRACT INFECTION
     Route: 048
  11. CIPROFLOXACIN [Suspect]
     Indication: URINARY TRACT INFECTION
     Route: 048
  12. CIPROFLOXACIN [Suspect]
     Route: 048

REACTIONS (3)
  - MENISCUS LESION [None]
  - TENDON DISORDER [None]
  - TENDON RUPTURE [None]
